FAERS Safety Report 6961170-4 (Version None)
Quarter: 2010Q3

REPORT INFORMATION
  Report Type: 
  Country: None (occurrence: None)
  Receive Date: 20100901
  Receipt Date: 20100823
  Transmission Date: 20110219
  Serious: Yes (Hospitalization)
  Sender: FDA-Public Use
  Company Number: DE-BRISTOL-MYERS SQUIBB COMPANY-15260011

PATIENT
  Age: 74 Year
  Sex: Male
  Weight: 70 kg

DRUGS (4)
  1. CETUXIMAB [Suspect]
     Indication: HEAD AND NECK CANCER
     Dosage: 5MG/ML RECENT INF-16AUG2010; NO OF INF-13
     Route: 042
     Dates: start: 20100519
  2. CARBOPLATIN [Suspect]
     Indication: HEAD AND NECK CANCER
     Dosage: RECENT INF-16AUG2010; NO OF INF-5; 1DF-AUC5
     Route: 042
     Dates: start: 20100519
  3. FLUOROURACIL [Suspect]
     Indication: HEAD AND NECK CANCER
     Dosage: CONTINOUS INFUSION FROM DAY 1 TO DAY4 OF CYCLE (1000 MG/M2);RECENT INF-16AUG2010; NO OF INF-5
     Route: 042
     Dates: start: 20100519
  4. CILENGITIDE [Suspect]
     Indication: HEAD AND NECK CANCER
     Dosage: RECENT INF-19AUG2010 500MG;  28TH INF
     Route: 042
     Dates: start: 20100519

REACTIONS (1)
  - SYNCOPE [None]
